FAERS Safety Report 10480620 (Version 1)
Quarter: 2014Q3

REPORT INFORMATION
  Report Type: Spontaneous
  Country: US (occurrence: None)
  Receive Date: 20140925
  Receipt Date: 20140925
  Transmission Date: 20150326
  Serious: Yes (Other)
  Sender: FDA-Public Use
  Company Number: 2009S1005633

PATIENT
  Age: 69 Year
  Sex: Female

DRUGS (1)
  1. PHOSPHO-SODA [Suspect]
     Active Substance: SODIUM PHOSPHATE, DIBASIC\SODIUM PHOSPHATE, MONOBASIC
     Indication: PRODUCT USED FOR UNKNOWN INDICATION
     Route: 048
     Dates: start: 2006, end: 2006

REACTIONS (8)
  - Oedema [None]
  - Renal artery fibromuscular dysplasia [None]
  - Renal failure chronic [None]
  - Blood parathyroid hormone increased [None]
  - Gastritis [None]
  - Renal artery stenosis [None]
  - Decreased appetite [None]
  - Renal atrophy [None]
